FAERS Safety Report 7294773-0 (Version None)
Quarter: 2011Q1

REPORT INFORMATION
  Report Type: 
  Country: None (occurrence: None)
  Receive Date: 20110216
  Receipt Date: 20110208
  Transmission Date: 20110831
  Serious: Yes (Other)
  Sender: FDA-Public Use
  Company Number: ZA-ASTELLAS-2011EU000669

PATIENT
  Age: 19 Year
  Sex: Female

DRUGS (2)
  1. PROTOPIC [Suspect]
     Indication: VITILIGO
     Dosage: 0.1 %, UNKNOWN/D
     Route: 061
     Dates: start: 20011218, end: 20110115
  2. CLOBETASOL PROPIONATE [Concomitant]
     Indication: VITILIGO
     Dosage: UNK
     Route: 061
     Dates: start: 20101218, end: 20110115

REACTIONS (2)
  - OFF LABEL USE [None]
  - DERMATITIS CONTACT [None]
